FAERS Safety Report 24702974 (Version 1)
Quarter: 2024Q4

REPORT INFORMATION
  Report Type: Spontaneous
  Country: FR (occurrence: FR)
  Receive Date: 20241205
  Receipt Date: 20241205
  Transmission Date: 20250114
  Serious: Yes (Hospitalization)
  Sender: MYLAN
  Company Number: None

PATIENT
  Age: 48 Year
  Sex: Female

DRUGS (10)
  1. TRAMADOL [Suspect]
     Active Substance: TRAMADOL
     Indication: Product used for unknown indication
     Dosage: 750 MILLIGRAM, QD (PROLONGED RELEASE 150MG, 4 TO 6 TIMES/DAY)
     Route: 048
     Dates: start: 2022, end: 2023
  2. TRAMADOL [Suspect]
     Active Substance: TRAMADOL
     Dosage: 500 MILLIGRAM, QD (150MG TABLET MORNING AND EVENING + 50 MG EFFERVESCENT ON DEMAND MAX 4 TIMES/DAY)
     Route: 048
     Dates: start: 2023, end: 2024
  3. TRAMADOL [Suspect]
     Active Substance: TRAMADOL
     Indication: Product used for unknown indication
     Dosage: 400 MILLIGRAM, QD (PROLONGED RELEASE 200MG MORNING AND EVENING)
     Route: 048
  4. TRAMADOL [Suspect]
     Active Substance: TRAMADOL
     Indication: Product used for unknown indication
     Dosage: 50 MILLIGRAM, PRN, ON DEMAND MAX 4 TIMES/DAY
     Route: 048
     Dates: start: 2023, end: 2024
  5. ZOLPIDEM [Suspect]
     Active Substance: ZOLPIDEM TARTRATE
     Indication: Product used for unknown indication
     Dosage: 10 MILLIGRAM, QD
     Route: 048
     Dates: start: 2023, end: 2024
  6. ZOLPIDEM [Suspect]
     Active Substance: ZOLPIDEM TARTRATE
     Dosage: 35 MILLIGRAM, QD (2 TO 5 TABLETS PER DAY)
     Route: 048
     Dates: start: 2024
  7. FENTANYL [Suspect]
     Active Substance: FENTANYL
     Indication: Product used for unknown indication
     Dosage: 50 MICROGRAM, QD
     Route: 062
     Dates: start: 2024, end: 20240719
  8. FENTANYL [Suspect]
     Active Substance: FENTANYL
     Dosage: 25 MICROGRAM, QD
     Route: 062
     Dates: start: 20240719, end: 202409
  9. MORPHINE SULFATE [Suspect]
     Active Substance: MORPHINE SULFATE
     Indication: Product used for unknown indication
     Dosage: 5 MILLIGRAM, PRN ((5 MG ON DEMAND))
     Route: 048
     Dates: start: 2023, end: 2024
  10. OXYCODONE HYDROCHLORIDE [Suspect]
     Active Substance: OXYCODONE HYDROCHLORIDE
     Indication: Product used for unknown indication
     Dosage: UNK
     Route: 065
     Dates: start: 2023, end: 20240719

REACTIONS (1)
  - Drug use disorder [Not Recovered/Not Resolved]

NARRATIVE: CASE EVENT DATE: 20240101
